FAERS Safety Report 4572649-7 (Version None)
Quarter: 2005Q1

REPORT INFORMATION
  Report Type: 
  Country: None (occurrence: None)
  Receive Date: 20050208
  Receipt Date: 20041104
  Transmission Date: 20050727
  Serious: Yes (Other)
  Sender: FDA-Public Use
  Company Number: US-GLAXOSMITHKLINE-A0532717A

PATIENT

DRUGS (3)
  1. PAXIL [Suspect]
     Indication: ILL-DEFINED DISORDER
     Dosage: 37.5MG PER DAY
     Route: 048
  2. WELLBUTRIN [Suspect]
     Indication: ILL-DEFINED DISORDER
     Dosage: 300MG PER DAY
     Route: 048
  3. GEODON [Concomitant]

REACTIONS (1)
  - HALLUCINATION [None]
